FAERS Safety Report 20409007 (Version 4)
Quarter: 2023Q2

REPORT INFORMATION
  Report Type: Report from Study
  Country: JP (occurrence: JP)
  Receive Date: 20220201
  Receipt Date: 20230505
  Transmission Date: 20230721
  Serious: Yes (Hospitalization, Other)
  Sender: FDA-Public Use
  Company Number: JP-ASTELLAS-2022JP001260

PATIENT
  Age: 75 Year
  Sex: Male

DRUGS (29)
  1. ENFORTUMAB VEDOTIN [Suspect]
     Active Substance: ENFORTUMAB VEDOTIN
     Indication: Metastatic carcinoma of the bladder
     Route: 041
     Dates: start: 20220107, end: 20220114
  2. ACTONEL [Concomitant]
     Active Substance: RISEDRONATE SODIUM
     Indication: Osteoporosis prophylaxis
     Route: 048
     Dates: start: 20200318, end: 20220209
  3. SULFAMETHOXAZOLE\TRIMETHOPRIM [Concomitant]
     Active Substance: SULFAMETHOXAZOLE\TRIMETHOPRIM
     Indication: Infection prophylaxis
     Route: 048
     Dates: start: 20220104, end: 20220115
  4. SULFAMETHOXAZOLE\TRIMETHOPRIM [Concomitant]
     Active Substance: SULFAMETHOXAZOLE\TRIMETHOPRIM
     Route: 048
     Dates: start: 20220131, end: 20220205
  5. PIPERACILLIN SODIUM\TAZOBACTAM SODIUM [Concomitant]
     Active Substance: PIPERACILLIN SODIUM\TAZOBACTAM SODIUM
     Indication: Pyelonephritis
     Route: 065
     Dates: start: 20220119, end: 20220119
  6. PIPERACILLIN SODIUM\TAZOBACTAM SODIUM [Concomitant]
     Active Substance: PIPERACILLIN SODIUM\TAZOBACTAM SODIUM
     Route: 065
     Dates: start: 20220120, end: 20220121
  7. PIPERACILLIN SODIUM\TAZOBACTAM SODIUM [Concomitant]
     Active Substance: PIPERACILLIN SODIUM\TAZOBACTAM SODIUM
     Route: 065
     Dates: start: 20220126, end: 20220126
  8. CALONAL [Concomitant]
     Active Substance: ACETAMINOPHEN
     Indication: Pyelonephritis
     Route: 048
     Dates: start: 20220120, end: 20220222
  9. CALONAL [Concomitant]
     Active Substance: ACETAMINOPHEN
     Indication: Cytomegalovirus enterocolitis
  10. MEROPENEM [Concomitant]
     Active Substance: MEROPENEM
     Indication: Pyelonephritis
     Route: 065
     Dates: start: 20220121, end: 20220121
  11. MEROPENEM [Concomitant]
     Active Substance: MEROPENEM
     Indication: Infection prophylaxis
     Route: 065
     Dates: start: 20220122, end: 20220125
  12. MEROPENEM [Concomitant]
     Active Substance: MEROPENEM
     Route: 065
     Dates: start: 20220204, end: 20220204
  13. MEROPENEM [Concomitant]
     Active Substance: MEROPENEM
     Route: 065
     Dates: start: 20220205, end: 20220208
  14. MEROPENEM [Concomitant]
     Active Substance: MEROPENEM
     Route: 065
     Dates: start: 20220209, end: 20220209
  15. MEROPENEM [Concomitant]
     Active Substance: MEROPENEM
     Route: 065
     Dates: start: 20220210, end: 20220221
  16. ACETAMINOPHEN [Concomitant]
     Active Substance: ACETAMINOPHEN
     Indication: Pyelonephritis
     Route: 065
     Dates: start: 20220125, end: 20220220
  17. ACETAMINOPHEN [Concomitant]
     Active Substance: ACETAMINOPHEN
     Indication: Cytomegalovirus enterocolitis
  18. DEXAMETHASONE [Concomitant]
     Active Substance: DEXAMETHASONE
     Indication: Oral candidiasis
     Dosage: ADEQUATE DOSE, TWICE DAILY
     Route: 065
     Dates: start: 20220130, end: 20220202
  19. FUNGIZONE [Concomitant]
     Active Substance: AMPHOTERICIN B
     Indication: Oral candidiasis
     Route: 048
     Dates: start: 20220203, end: 20220210
  20. ZINC [Concomitant]
     Active Substance: ZINC
     Indication: Hypozincaemia
     Route: 048
     Dates: start: 20220204, end: 20220210
  21. TEICOPLANIN [Concomitant]
     Active Substance: TEICOPLANIN
     Indication: Infection prophylaxis
     Route: 065
     Dates: start: 20220209, end: 20220209
  22. TEICOPLANIN [Concomitant]
     Active Substance: TEICOPLANIN
     Route: 065
     Dates: start: 20220210, end: 20220210
  23. TEICOPLANIN [Concomitant]
     Active Substance: TEICOPLANIN
     Route: 065
     Dates: start: 20220211, end: 20220221
  24. OMEPRAZOLE [Concomitant]
     Active Substance: OMEPRAZOLE
     Indication: Cytomegalovirus enterocolitis
     Route: 065
     Dates: start: 20220209, end: 20220214
  25. Denosine [Concomitant]
     Indication: Cytomegalovirus enterocolitis
     Route: 065
     Dates: start: 20220210, end: 20220216
  26. Denosine [Concomitant]
     Route: 065
     Dates: start: 20220217, end: 20220218
  27. Denosine [Concomitant]
     Route: 065
     Dates: start: 20220219, end: 20220228
  28. Denosine [Concomitant]
     Route: 065
     Dates: start: 20220301, end: 20220311
  29. VENOGLOBULIN IH [Concomitant]
     Active Substance: HUMAN IMMUNOGLOBULIN G
     Indication: Hypogammaglobulinaemia
     Route: 065
     Dates: start: 20220210, end: 20220210

REACTIONS (15)
  - Pyrexia [Recovered/Resolved]
  - Urinary tract infection [Recovered/Resolved]
  - Myelosuppression [Recovered/Resolved]
  - Pyelonephritis [Recovered/Resolved]
  - Decreased appetite [Recovered/Resolved]
  - Anaemia [Recovered/Resolved]
  - White blood cell count decreased [Recovered/Resolved]
  - Alopecia [Unknown]
  - Oral candidiasis [Recovering/Resolving]
  - Hypozincaemia [Not Recovered/Not Resolved]
  - Cytomegalovirus enterocolitis [Recovered/Resolved]
  - Hypogammaglobulinaemia [Not Recovered/Not Resolved]
  - Haemophagocytic lymphohistiocytosis [Recovering/Resolving]
  - Hypophosphataemia [Recovering/Resolving]
  - Dyspnoea [Recovering/Resolving]

NARRATIVE: CASE EVENT DATE: 20220118
